FAERS Safety Report 6693674-6 (Version None)
Quarter: 2010Q2

REPORT INFORMATION
  Report Type: 
  Country: None (occurrence: None)
  Receive Date: 20100423
  Receipt Date: 20100419
  Transmission Date: 20101027
  Serious: Yes (Death, Hospitalization)
  Sender: FDA-Public Use
  Company Number: KR-ELI_LILLY_AND_COMPANY-KR201004004924

PATIENT
  Age: 52 Year
  Sex: Male
  Weight: 52.4 kg

DRUGS (6)
  1. PEMETREXED [Suspect]
     Indication: NON-SMALL CELL LUNG CANCER
     Dosage: 500 MG/M2, DAY ONE EVERY 21 DAYS
     Route: 042
     Dates: start: 20081216
  2. FOLIC ACID [Concomitant]
     Indication: SUPPLEMENTATION THERAPY
     Dosage: 1 MG, UNK
     Route: 048
     Dates: start: 20081214, end: 20090301
  3. VITAMIN B-12 [Concomitant]
     Indication: SUPPLEMENTATION THERAPY
     Dosage: 1 MG, UNK
     Route: 030
     Dates: start: 20081214, end: 20081214
  4. DEXAMETHASONE [Concomitant]
     Indication: SUPPLEMENTATION THERAPY
     Dosage: 3 MG, UNK
     Route: 048
     Dates: start: 20081215, end: 20090214
  5. ONDANSETRON [Concomitant]
     Indication: NAUSEA
     Dosage: UNK, UNK
     Dates: start: 20081216, end: 20090116
  6. PHENIRAMINE [Concomitant]
     Indication: ALLERGY PROPHYLAXIS
     Dates: start: 20081216, end: 20090116

REACTIONS (3)
  - HYPONATRAEMIA [None]
  - NEURODERMATITIS [None]
  - PNEUMONIA [None]
